FAERS Safety Report 6153664-9 (Version None)
Quarter: 2009Q2

REPORT INFORMATION
  Report Type: 
  Country: None (occurrence: None)
  Receive Date: 20090413
  Receipt Date: 20090403
  Transmission Date: 20091009
  Serious: Yes (Hospitalization)
  Sender: FDA-Public Use
  Company Number: JP-MERCK-0903USA04475

PATIENT
  Age: 86 Year
  Sex: Male
  Weight: 60 kg

DRUGS (8)
  1. STROMECTOL [Suspect]
     Indication: ACARODERMATITIS
     Route: 048
     Dates: start: 20090311, end: 20090311
  2. MAGNESIUM OXIDE [Concomitant]
     Indication: CONSTIPATION
     Route: 048
     Dates: start: 20060806
  3. DIMETHICONE [Concomitant]
     Indication: FLATULENCE
     Route: 048
     Dates: start: 20070603
  4. URSODIOL [Concomitant]
     Indication: CHOLESTASIS
     Route: 048
     Dates: start: 20060806
  5. ENTERONON R [Concomitant]
     Indication: GASTROINTESTINAL DISORDER
     Route: 048
     Dates: start: 20080123
  6. ALEVIATIN [Concomitant]
     Indication: EPILEPSY
     Route: 048
     Dates: start: 20060806
  7. MEXILETINE HYDROCHLORIDE [Concomitant]
     Indication: ARRHYTHMIA
     Route: 048
     Dates: start: 20080624
  8. WARFARIN POTASSIUM [Concomitant]
     Indication: EMBOLISM
     Route: 048
     Dates: start: 20060806

REACTIONS (1)
  - DRUG ERUPTION [None]
